FAERS Safety Report 8848967 (Version 2)
Quarter: 2012Q4

REPORT INFORMATION
  Report Type: 
  Country: JP (occurrence: JP)
  Receive Date: 20121019
  Receipt Date: 20121212
  Transmission Date: 20130627
  Serious: Yes (Other)
  Sender: FDA-Public Use
  Company Number: JP-ELI_LILLY_AND_COMPANY-JP201210004090

PATIENT
  Sex: Female

DRUGS (2)
  1. CYMBALTA [Suspect]
     Indication: DEPRESSION
     Dosage: 40 mg, qd
     Route: 048
     Dates: start: 20111102, end: 20120904
  2. FLUNITRAZEPAM [Concomitant]
     Dosage: 2 mg, qd
     Route: 048
     Dates: end: 20120904

REACTIONS (1)
  - Bipolar I disorder [Recovering/Resolving]
